FAERS Safety Report 18629488 (Version 1)
Quarter: 2020Q4

REPORT INFORMATION
  Report Type: Spontaneous
  Country: IR (occurrence: IR)
  Receive Date: 20201217
  Receipt Date: 20201217
  Transmission Date: 20210114
  Serious: Yes (Hospitalization)
  Sender: FDA-Public Use
  Company Number: IR-ENDO PHARMACEUTICALS INC-2020-007766

PATIENT
  Age: 21 Year
  Sex: Male

DRUGS (4)
  1. ZOLPIDEM TARTRATE. [Suspect]
     Active Substance: ZOLPIDEM TARTRATE
     Indication: MENTAL DISORDER
     Dosage: GRADUALLY INCREASED TO 70-80 MG DAILY AFTER 2 MONTHS OF 10 MG DAILY
     Route: 065
  2. ZOLPIDEM TARTRATE. [Suspect]
     Active Substance: ZOLPIDEM TARTRATE
     Indication: INSOMNIA
     Dosage: 10 MG, DAILY
     Route: 065
  3. ZOLPIDEM TARTRATE. [Suspect]
     Active Substance: ZOLPIDEM TARTRATE
     Dosage: 5 MG, BID
     Route: 065
  4. ZOLPIDEM TARTRATE. [Suspect]
     Active Substance: ZOLPIDEM TARTRATE
     Dosage: TAPERED GRADUALLY OVER 1 WEEK
     Route: 065

REACTIONS (6)
  - Dizziness [Recovered/Resolved]
  - Paroxysmal autonomic instability with dystonia [Recovered/Resolved]
  - Drug dependence [Recovered/Resolved]
  - Off label use [Not Recovered/Not Resolved]
  - Nightmare [Recovered/Resolved]
  - Drug withdrawal syndrome [Recovered/Resolved]
